FAERS Safety Report 9749757 (Version 1)
Quarter: 2013Q4

REPORT INFORMATION
  Report Type: Spontaneous
  Country: US (occurrence: US)
  Receive Date: 20131212
  Receipt Date: 20131212
  Transmission Date: 20140711
  Serious: Yes (Other)
  Sender: FDA-Public Use
  Company Number: US-TARO-2013P1021502

PATIENT
  Age: 51 Year
  Sex: Female
  Weight: 59.88 kg

DRUGS (2)
  1. IMIQUIMOD CREAM 5% [Suspect]
     Route: 061
     Dates: start: 20131025, end: 20131029
  2. IMIQUIMOD CREAM 5% [Suspect]
     Route: 061
     Dates: start: 20131102, end: 20131106

REACTIONS (6)
  - Pain in extremity [Unknown]
  - Arthralgia [Recovered/Resolved]
  - Joint swelling [Recovered/Resolved]
  - Local swelling [Unknown]
  - Erythema [Recovered/Resolved]
  - Rheumatoid arthritis [Unknown]
